FAERS Safety Report 20056892 (Version 2)
Quarter: 2021Q4

REPORT INFORMATION
  Report Type: Spontaneous
  Country: GB (occurrence: GB)
  Receive Date: 20211111
  Receipt Date: 20211123
  Transmission Date: 20220303
  Serious: Yes (Other)
  Sender: FDA-Public Use
  Company Number: GB-ADVANZ PHARMA-202110007418

PATIENT

DRUGS (6)
  1. PREDNISOLONE [Suspect]
     Active Substance: PREDNISOLONE
     Indication: Granulomatosis with polyangiitis
     Dosage: UNK
  2. PREDNISOLONE [Suspect]
     Active Substance: PREDNISOLONE
     Indication: Vasculitis
     Dosage: 15 MG (INCREASED)
  3. PREDNISOLONE [Suspect]
     Active Substance: PREDNISOLONE
     Dosage: 60 MG, QD
     Route: 048
  4. RITUXIMAB [Suspect]
     Active Substance: RITUXIMAB
     Indication: Granulomatosis with polyangiitis
     Dosage: 1 G (TWO 1 G DOSES)
  5. RITUXIMAB [Suspect]
     Active Substance: RITUXIMAB
     Dosage: UNK (SINGLE DOSE)
  6. RITUXIMAB [Suspect]
     Active Substance: RITUXIMAB
     Dosage: UNK (5 MONTHS LATER)

REACTIONS (1)
  - Arthralgia [Recovering/Resolving]
